FAERS Safety Report 25752194 (Version 1)
Quarter: 2025Q3

REPORT INFORMATION
  Report Type: Spontaneous
  Country: US (occurrence: US)
  Receive Date: 20250902
  Receipt Date: 20250902
  Transmission Date: 20251020
  Serious: No
  Sender: MYLAN
  Company Number: US-MYLANLABS-2025M1072386

PATIENT
  Sex: Female
  Weight: 61.23 kg

DRUGS (2)
  1. SCOPOLAMINE TRANSDERMAL SYSTEM [Suspect]
     Active Substance: SCOPOLAMINE
     Indication: Motion sickness
     Dosage: 1 MILLIGRAM, Q3D (ONCE EVERY THREE DAYS)
     Dates: start: 20250807, end: 20250815
  2. SERTRALINE [Concomitant]
     Active Substance: SERTRALINE HYDROCHLORIDE
     Indication: Generalised anxiety disorder
     Dosage: UNK, QD (ONCE A DAY)

REACTIONS (4)
  - Depression [Unknown]
  - Anxiety [Unknown]
  - Paranoia [Unknown]
  - Withdrawal syndrome [Unknown]
